FAERS Safety Report 25895540 (Version 1)
Quarter: 2025Q4

REPORT INFORMATION
  Report Type: Spontaneous
  Country: CN (occurrence: CN)
  Receive Date: 20251008
  Receipt Date: 20251008
  Transmission Date: 20260118
  Serious: Yes (Other)
  Sender: DR REDDYS
  Company Number: None

PATIENT
  Age: 41 Year
  Sex: Female
  Weight: 72.5 kg

DRUGS (1)
  1. CARBOPROST TROMETHAMINE [Suspect]
     Active Substance: CARBOPROST TROMETHAMINE
     Indication: Haemostasis
     Dosage: 250 MG, QD
     Route: 030
     Dates: start: 20240225, end: 20240225

REACTIONS (1)
  - Temperature intolerance [Recovered/Resolved]

NARRATIVE: CASE EVENT DATE: 20240225
